FAERS Safety Report 5505556-3 (Version None)
Quarter: 2007Q4

REPORT INFORMATION
  Report Type: 
  Country: None (occurrence: None)
  Receive Date: 20071102
  Receipt Date: 20071025
  Transmission Date: 20080405
  Serious: Yes (Hospitalization)
  Sender: FDA-Public Use
  Company Number: JP-ASTRAZENECA-2007AP06759

PATIENT
  Age: 65 Year
  Sex: Female

DRUGS (7)
  1. DIPRIVAN INJECTION [Suspect]
     Indication: INDUCTION OF ANAESTHESIA
     Route: 042
  2. VECURONIUM BROMIDE [Concomitant]
     Indication: INDUCTION OF ANAESTHESIA
  3. FENTANYL CITRATE [Concomitant]
     Indication: INDUCTION AND MAINTENANCE OF ANAESTHESIA
  4. FENTANYL CITRATE [Concomitant]
     Indication: MAINTENANCE OF ANAESTHESIA
  5. NITROUS OXIDE [Concomitant]
     Indication: MAINTENANCE OF ANAESTHESIA
  6. OXYGEN [Concomitant]
     Indication: MAINTENANCE OF ANAESTHESIA
  7. SEVOFLURANE [Concomitant]
     Indication: MAINTENANCE OF ANAESTHESIA

REACTIONS (1)
  - DELAYED RECOVERY FROM ANAESTHESIA [None]
